FAERS Safety Report 20137999 (Version 1)
Quarter: 2021Q4

REPORT INFORMATION
  Report Type: Spontaneous
  Country: BR (occurrence: BR)
  Receive Date: 20211202
  Receipt Date: 20211202
  Transmission Date: 20220303
  Serious: Yes (Hospitalization, Other)
  Sender: FDA-Public Use
  Company Number: BR-NOVOPROD-870392

PATIENT
  Age: 74 Year
  Sex: Female
  Weight: 61 kg

DRUGS (21)
  1. OZEMPIC [Suspect]
     Active Substance: SEMAGLUTIDE
     Dosage: 0.5 MG, QW
     Route: 065
     Dates: start: 202105
  2. OZEMPIC [Suspect]
     Active Substance: SEMAGLUTIDE
     Dosage: 1.0 MG, QW
     Route: 065
     Dates: start: 202105
  3. OZEMPIC [Suspect]
     Active Substance: SEMAGLUTIDE
     Indication: Product used for unknown indication
     Dosage: 0.25 MG, QW
     Route: 065
     Dates: start: 202103
  4. JARDIANCE [Concomitant]
     Active Substance: EMPAGLIFLOZIN
     Dosage: 25MG
     Route: 048
     Dates: start: 202103
  5. PIOGLITAZONE [Concomitant]
     Active Substance: PIOGLITAZONE
     Dosage: 30MG
     Route: 048
     Dates: start: 202103
  6. ROSUVASTATIN [Concomitant]
     Active Substance: ROSUVASTATIN
     Dosage: 20MG
     Route: 048
     Dates: start: 202103
  7. ACTONEL [Concomitant]
     Active Substance: RISEDRONATE SODIUM
     Dosage: UNK ( PAUSE FOR 10 MONTHS AND RESTARTED)
     Route: 048
  8. ACTONEL [Concomitant]
     Active Substance: RISEDRONATE SODIUM
     Dosage: UNK (FOR 3 YEARS)
     Route: 048
  9. CHOLECALCIFEROL [Concomitant]
     Active Substance: CHOLECALCIFEROL
     Dosage: 2000 UI
     Route: 048
     Dates: start: 202103
  10. ETNA [CYTIDINE PHOSPHATE SODIUM;HYDROXOCOBALAMIN ACETATE;URIDINE TRIPH [Concomitant]
     Dosage: 2 CP 3 X DAY (VIT B12)
     Route: 048
  11. THIOCTACID HR [Concomitant]
     Dosage: 600
     Route: 048
  12. VENALOT CREME [Concomitant]
     Dosage: UNK
     Route: 048
     Dates: start: 202103
  13. ASPIRIN [Concomitant]
     Active Substance: ASPIRIN
     Dosage: 100MG AT LUNCH
     Route: 048
     Dates: start: 202103
  14. .ALPHA.-TOCOPHEROL ACETATE, D-\EVENING PRIMROSE OIL\FISH OIL [Concomitant]
     Active Substance: .ALPHA.-TOCOPHEROL ACETATE, D-\EVENING PRIMROSE OIL\FISH OIL
     Dosage: 1000MG
     Route: 048
  15. MOTILEX [ATROPINE SULFATE;DIPHENOXYLATE HYDROCHLORIDE] [Concomitant]
     Route: 048
  16. BREWERS YEAST [Concomitant]
     Active Substance: SACCHAROMYCES CEREVISIAE
     Dosage: UNK
     Route: 048
  17. CHONDROITIN SULFATE (BOVINE)\GLUCOSAMINE SULFATE [Concomitant]
     Active Substance: CHONDROITIN SULFATE (BOVINE)\GLUCOSAMINE SULFATE
     Dosage: UNK
     Route: 048
  18. PROVANCE [Concomitant]
     Dosage: AT NIGHT
     Route: 048
  19. PROLIA [Concomitant]
     Active Substance: DENOSUMAB
     Dosage: 1 APPLICATION EVERY 6M MONTHS
  20. TRESIBA [Concomitant]
     Active Substance: INSULIN DEGLUDEC
     Dosage: 20 IU, QD
     Route: 065
  21. TRESIBA [Concomitant]
     Active Substance: INSULIN DEGLUDEC
     Dosage: 10 IU, QD
     Route: 065

REACTIONS (3)
  - Coronary artery occlusion [Unknown]
  - Post procedural complication [Unknown]
  - Hepatic steatosis [Unknown]

NARRATIVE: CASE EVENT DATE: 20210930
